FAERS Safety Report 10054990 (Version 2)
Quarter: 2014Q2

REPORT INFORMATION
  Report Type: Report from Study
  Country: FR (occurrence: FR)
  Receive Date: 20140402
  Receipt Date: 20140402
  Transmission Date: 20141212
  Serious: Yes (Hospitalization, Other)
  Sender: FDA-Public Use
  Company Number: PHHY2014FR034714

PATIENT
  Age: 74 Year
  Sex: Male

DRUGS (12)
  1. CERTICAN [Suspect]
     Indication: IMMUNOSUPPRESSION
     Dates: start: 20100702, end: 20110408
  2. RAPAMUNE [Concomitant]
     Indication: IMMUNOSUPPRESSION
     Dates: start: 20120704
  3. CELLCEPT [Concomitant]
     Indication: IMMUNOSUPPRESSION
     Dates: start: 20100628
  4. CELLCEPT [Concomitant]
     Dates: start: 20100803
  5. CORTANCYL [Concomitant]
     Indication: IMMUNOSUPPRESSION
     Dates: start: 20101216, end: 20110130
  6. CORTANCYL [Concomitant]
     Dates: start: 20110412
  7. PROGRAF [Concomitant]
     Indication: IMMUNOSUPPRESSION
     Dates: start: 20110415, end: 20120704
  8. PROGRAF [Concomitant]
     Dates: start: 20110409, end: 20120704
  9. ZALDIAR [Concomitant]
     Indication: NEUROPATHY PERIPHERAL
     Dosage: 6 MG, UNK
     Dates: start: 20120118
  10. LAROXYL [Concomitant]
     Indication: NEUROPATHY PERIPHERAL
     Dosage: 5 DRP, QD
     Dates: start: 20120215
  11. RIVOTRIL [Concomitant]
     Indication: NEUROPATHY PERIPHERAL
     Dosage: 15 DRP, QD
     Dates: start: 20110421
  12. NEURONTIN [Concomitant]
     Indication: NEUROPATHY PERIPHERAL
     Dosage: 200 MG, UNK
     Dates: start: 20110323, end: 20111228

REACTIONS (2)
  - Tendon rupture [Recovered/Resolved]
  - Fall [Unknown]
